FAERS Safety Report 22828403 (Version 3)
Quarter: 2025Q1

REPORT INFORMATION
  Report Type: Report from Study
  Country: DE (occurrence: DE)
  Receive Date: 20230816
  Receipt Date: 20250218
  Transmission Date: 20250408
  Serious: Yes (Other)
  Sender: TAKEDA
  Company Number: DE-TAKEDA-2023TUS079773

PATIENT
  Age: 51 Year
  Sex: Female

DRUGS (40)
  1. TEDUGLUTIDE [Suspect]
     Active Substance: TEDUGLUTIDE
     Indication: Short-bowel syndrome
     Dosage: 1.55 MILLIGRAM, QD
     Dates: start: 20171026, end: 20171129
  2. TEDUGLUTIDE [Suspect]
     Active Substance: TEDUGLUTIDE
     Dosage: 1.6 MILLIGRAM, QD
     Dates: start: 20171130, end: 20230921
  3. TEDUGLUTIDE [Suspect]
     Active Substance: TEDUGLUTIDE
     Dosage: 1 MILLIGRAM, QD
     Dates: start: 20230922
  4. TEDUGLUTIDE [Suspect]
     Active Substance: TEDUGLUTIDE
  5. CASPOFUNGIN [Concomitant]
     Active Substance: CASPOFUNGIN
     Dosage: 50 MILLIGRAM, QD
     Dates: start: 20220328, end: 20220411
  6. CASPOFUNGIN [Concomitant]
     Active Substance: CASPOFUNGIN
     Dosage: 70 MILLIGRAM, SINGLE
     Dates: start: 20240714, end: 20240714
  7. MAGNESIUM CITRAT [Concomitant]
     Dosage: 100 MILLIGRAM, TID
     Dates: start: 20220404
  8. ELECTROLYTES NOS\MINERALS [Concomitant]
     Active Substance: ELECTROLYTES NOS\MINERALS
     Indication: Nutritional supplementation
     Dosage: 10 MILLILITER, QD
     Dates: start: 20200522
  9. AMPHOTERICIN B [Concomitant]
     Active Substance: AMPHOTERICIN B
     Indication: Device related infection
     Dosage: 150 MILLIGRAM, QD
     Dates: start: 20240715, end: 20240721
  10. AMPHOTERICIN B [Concomitant]
     Active Substance: AMPHOTERICIN B
     Indication: Prophylaxis
  11. ZOPICLONE [Concomitant]
     Active Substance: ZOPICLONE
     Indication: Prophylaxis
     Dosage: 7.5 MILLIGRAM, QD
     Dates: start: 20240708, end: 20240729
  12. PANTOPRAZOLE [Concomitant]
     Active Substance: PANTOPRAZOLE
     Indication: Gastric pH decreased
     Dosage: 40 MILLIGRAM, QD
  13. FOLIC ACID [Concomitant]
     Active Substance: FOLIC ACID
     Indication: Supplementation therapy
     Dosage: 5 MILLIGRAM, QD
  14. MORPHINE [Concomitant]
     Active Substance: MORPHINE
     Indication: Prophylaxis
     Dosage: 999 GTT DROPS, TID
     Dates: end: 20231220
  15. MORPHINE [Concomitant]
     Active Substance: MORPHINE
     Dosage: 7 GTT DROPS, QID
     Dates: start: 20231221
  16. CODEINE [Concomitant]
     Active Substance: CODEINE
     Indication: Prophylaxis
     Dosage: 25 GTT DROPS, TID
  17. VITAMIN D [Concomitant]
     Active Substance: VITAMIN D NOS
     Indication: Supplementation therapy
     Dosage: 1000.00 INTERNATIONAL UNIT, QD
     Dates: end: 20231219
  18. HYDROCORTISONE [Concomitant]
     Active Substance: HYDROCORTISONE
     Indication: Adrenocortical insufficiency acute
     Dosage: 20 MILLIGRAM, QD
  19. Jonosteril [Concomitant]
     Indication: Nutritional supplementation
     Dosage: 1 LITER, QD
     Dates: start: 20200522
  20. NUTRIFLEX LIPID PERI [Concomitant]
     Indication: Nutritional supplementation
     Dosage: 1.86 LITER, QD
     Dates: start: 20200522
  21. KCL [Concomitant]
     Active Substance: POTASSIUM CHLORIDE
     Indication: Nutritional supplementation
     Dosage: 20 MILLILITER, TID
     Dates: start: 20200522, end: 20231220
  22. KCL [Concomitant]
     Active Substance: POTASSIUM CHLORIDE
     Dosage: 20 MILLILITER, QD
     Dates: start: 20231221
  23. PIPERACILLIN SODIUM\TAZOBACTAM SODIUM [Concomitant]
     Active Substance: PIPERACILLIN SODIUM\TAZOBACTAM SODIUM
     Indication: Device related infection
     Dosage: 0.5 GRAM, BID
     Dates: start: 20220331, end: 20220411
  24. CEFTRIAXONE [Concomitant]
     Active Substance: CEFTRIAXONE
     Indication: Pneumonia
     Dosage: 2 GRAM, QD
     Dates: start: 20231222, end: 20240212
  25. CEFTRIAXONE [Concomitant]
     Active Substance: CEFTRIAXONE
     Dosage: 2 GRAM, SINGLE
     Dates: start: 20240709, end: 20240709
  26. AMPICILLIN [Concomitant]
     Active Substance: AMPICILLIN
     Indication: Pneumonia
     Dosage: 2 GRAM, SINGLE
     Dates: start: 20231222, end: 20231222
  27. AMPICILLIN [Concomitant]
     Active Substance: AMPICILLIN
     Indication: Device related infection
     Dosage: 2 GRAM, QD
     Dates: start: 20240708, end: 20240709
  28. SULBACTAM [Concomitant]
     Active Substance: SULBACTAM
     Indication: Pneumonia
     Dosage: 1 GRAM, SINGLE
     Dates: start: 20231222, end: 20231222
  29. SULBACTAM [Concomitant]
     Active Substance: SULBACTAM
     Indication: Device related infection
     Dosage: 1 GRAM, QD
     Dates: start: 20240708, end: 20240709
  30. CHOLECALCIFEROL [Concomitant]
     Active Substance: CHOLECALCIFEROL
     Indication: Vitamin D deficiency
     Dosage: 1000 INTERNATIONAL UNIT, BID
     Dates: start: 20231220
  31. MIRTAZAPINE [Concomitant]
     Active Substance: MIRTAZAPINE
     Indication: Affective disorder
     Dosage: 15 MILLIGRAM, QD
     Dates: start: 20231228
  32. Dalteparinnatrium [Concomitant]
     Indication: Prophylaxis
     Dosage: 0.5 MILLILITER, QD
     Dates: start: 20231228
  33. PIPERACILLIN [Concomitant]
     Active Substance: PIPERACILLIN
     Indication: Device related infection
     Dosage: 4 GRAM, SINGLE
     Dates: start: 20240709, end: 20240709
  34. PIPERACILLIN [Concomitant]
     Active Substance: PIPERACILLIN
     Indication: Mediastinitis
  35. TAZOBACTAM [Concomitant]
     Active Substance: TAZOBACTAM
     Indication: Device related infection
     Dosage: 0.5 GRAM, SINGLE
     Dates: start: 20240709, end: 20240709
  36. MEROPENEM [Concomitant]
     Active Substance: MEROPENEM
     Indication: Device related infection
     Dosage: 500 MILLIGRAM, QD
     Dates: start: 20240709, end: 20240716
  37. AMBISOME [Concomitant]
     Active Substance: AMPHOTERICIN B
     Indication: Device related infection
     Dosage: 150 MILLIGRAM, QD
     Dates: start: 20240715, end: 20240721
  38. FLUCONAZOLE [Concomitant]
     Active Substance: FLUCONAZOLE
     Indication: Device related infection
     Dosage: 200 MILLIGRAM, QD
     Dates: start: 20240722, end: 20240730
  39. METOPROLOL SUCCINAT ACINO [Concomitant]
     Dosage: 24 MILLIGRAM, BID
     Dates: start: 20240713, end: 20240718
  40. OPIPRAMOL [Concomitant]
     Active Substance: OPIPRAMOL
     Indication: Prophylaxis
     Dosage: 50 MILLIGRAM, QD
     Dates: start: 20240708

REACTIONS (1)
  - Large intestinal haemorrhage [Recovered/Resolved]

NARRATIVE: CASE EVENT DATE: 20220101
